FAERS Safety Report 11886420 (Version 1)
Quarter: 2016Q1

REPORT INFORMATION
  Report Type: Report from Study
  Country: BR (occurrence: BR)
  Receive Date: 20160104
  Receipt Date: 20160104
  Transmission Date: 20160526
  Serious: Yes (Life-Threatening, Hospitalization, Other)
  Sender: FDA-Public Use
  Company Number: BR-BAYER-2015-450181

PATIENT
  Age: 57 Year
  Sex: Female

DRUGS (2)
  1. BETAFERON [Suspect]
     Active Substance: INTERFERON BETA-1B
     Indication: MULTIPLE SCLEROSIS
     Dosage: 1 ML, QOD
     Route: 058
     Dates: start: 20060213
  2. PARACETAMOL [Concomitant]
     Active Substance: ACETAMINOPHEN
     Dosage: UNK
     Dates: start: 20050213

REACTIONS (18)
  - Anaemia [Recovering/Resolving]
  - Urinary tract infection [None]
  - Urinary tract infection [None]
  - Wound [None]
  - Seizure [Recovered/Resolved]
  - Weight decreased [Recovering/Resolving]
  - Blood pressure abnormal [None]
  - Hypersomnia [Not Recovered/Not Resolved]
  - Drug dose omission [None]
  - Pyrexia [Not Recovered/Not Resolved]
  - Dyskinesia [Not Recovered/Not Resolved]
  - Pyrexia [None]
  - Retching [Not Recovered/Not Resolved]
  - Pyrexia [None]
  - Liver disorder [Not Recovered/Not Resolved]
  - Dysphagia [Not Recovered/Not Resolved]
  - Hypertension [None]
  - Swelling [None]

NARRATIVE: CASE EVENT DATE: 20060213
